FAERS Safety Report 8086002-5 (Version None)
Quarter: 2012Q1

REPORT INFORMATION
  Report Type: 
  Country: None (occurrence: None)
  Receive Date: 20120128
  Receipt Date: 20110609
  Transmission Date: 20120608
  Serious: No
  Sender: FDA-Public Use
  Company Number: US-ABBOTT-11P-163-0731393-00

PATIENT
  Age: 49 Year
  Sex: Male

DRUGS (2)
  1. VITAMIN TAB [Concomitant]
     Indication: PRODUCT USED FOR UNKNOWN INDICATION
     Dosage: OTC
  2. HUMIRA [Suspect]
     Indication: PSORIASIS
     Dates: start: 20090201

REACTIONS (5)
  - SKIN FISSURES [None]
  - CYST [None]
  - PSORIASIS [None]
  - SKIN HAEMORRHAGE [None]
  - PRURITUS [None]
